FAERS Safety Report 9886360 (Version 1)
Quarter: 2014Q1

REPORT INFORMATION
  Report Type: Spontaneous
  Country: GB (occurrence: GB)
  Receive Date: 20140210
  Receipt Date: 20140210
  Transmission Date: 20141002
  Serious: Yes (Other)
  Sender: FDA-Public Use
  Company Number: GB-ACTAVIS-2014-01904

PATIENT
  Age: 53 Year
  Sex: Female

DRUGS (3)
  1. DOXYCYCLINE HYCLATE (UNKNOWN) [Suspect]
     Indication: SINUSITIS
     Dosage: 200 MG, TOTAL
     Route: 048
     Dates: start: 201312, end: 201312
  2. DOXYCYCLINE HYCLATE (UNKNOWN) [Suspect]
     Indication: LOWER RESPIRATORY TRACT INFECTION
     Dosage: 100 MG, TOTAL
     Route: 048
     Dates: start: 201312, end: 201312
  3. MINI-PILL [Concomitant]
     Indication: PRODUCT USED FOR UNKNOWN INDICATION
     Dosage: UNK
     Route: 065

REACTIONS (9)
  - Suicidal ideation [Unknown]
  - Tremor [Not Recovered/Not Resolved]
  - Aphagia [Not Recovered/Not Resolved]
  - Anxiety [Not Recovered/Not Resolved]
  - Vomiting [Unknown]
  - Malaise [Not Recovered/Not Resolved]
  - Feeling abnormal [Unknown]
  - Activities of daily living impaired [Unknown]
  - Crying [Unknown]
